FAERS Safety Report 5190010-1 (Version None)
Quarter: 2006Q4

REPORT INFORMATION
  Report Type: 
  Country: None (occurrence: None)
  Receive Date: 20061218
  Receipt Date: 20061206
  Transmission Date: 20070319
  Serious: Yes (Other)
  Sender: FDA-Public Use
  Company Number: 2006145026

PATIENT
  Sex: 0

DRUGS (2)
  1. GABAPENTIN [Suspect]
     Indication: EPILEPSY
     Dosage: 400 MG (200 MG, 2 IN 1 D), ORAL
     Route: 048
     Dates: start: 20061001
  2. NELBON (NITRAZEPAM) [Concomitant]

REACTIONS (3)
  - ABNORMAL BEHAVIOUR [None]
  - CONVULSION [None]
  - MEMORY IMPAIRMENT [None]
